FAERS Safety Report 19830720 (Version 1)
Quarter: 2021Q3

REPORT INFORMATION
  Report Type: Report from Study
  Country: CA (occurrence: CA)
  Receive Date: 20210915
  Receipt Date: 20210915
  Transmission Date: 20211014
  Serious: Yes (Other)
  Sender: FDA-Public Use
  Company Number: CA-JNJFOC-20210834064

PATIENT
  Age: 82 Year
  Sex: Female

DRUGS (15)
  1. VITAMIN C ACID [Concomitant]
     Active Substance: ASCORBIC ACID
  2. ADCIRCA [Concomitant]
     Active Substance: TADALAFIL
  3. PILOCARPINE. [Concomitant]
     Active Substance: PILOCARPINE
  4. LEVOTHYROXINE. [Concomitant]
     Active Substance: LEVOTHYROXINE
  5. SPIRIVA [Concomitant]
     Active Substance: TIOTROPIUM BROMIDE MONOHYDRATE
  6. LISINOPRIL. [Concomitant]
     Active Substance: LISINOPRIL
  7. RIVAROXABAN [Concomitant]
     Active Substance: RIVAROXABAN
  8. SELEXIPAG [Suspect]
     Active Substance: SELEXIPAG
     Indication: PULMONARY HYPERTENSION
     Route: 048
     Dates: start: 20210722, end: 202109
  9. SELEXIPAG [Suspect]
     Active Substance: SELEXIPAG
     Route: 048
     Dates: start: 20210907
  10. BOSENTAN. [Suspect]
     Active Substance: BOSENTAN
     Indication: PULMONARY HYPERTENSION
     Route: 048
     Dates: start: 20200130
  11. FISH OIL [Concomitant]
     Active Substance: FISH OIL
  12. DIGOXIN. [Concomitant]
     Active Substance: DIGOXIN
  13. LEKOVIT CA [Concomitant]
     Active Substance: CALCIUM CARBONATE\CHOLECALCIFEROL
  14. FUROSEMIDE. [Concomitant]
     Active Substance: FUROSEMIDE
  15. SPIRONOLACTONE. [Concomitant]
     Active Substance: SPIRONOLACTONE

REACTIONS (5)
  - Constipation [Not Recovered/Not Resolved]
  - Hypotension [Not Recovered/Not Resolved]
  - Oedema peripheral [Not Recovered/Not Resolved]
  - Muscle twitching [Not Recovered/Not Resolved]
  - Dyspnoea [Not Recovered/Not Resolved]
